FAERS Safety Report 20471270 (Version 1)
Quarter: 2022Q1

REPORT INFORMATION
  Report Type: Spontaneous
  Country: US (occurrence: US)
  Receive Date: 20220214
  Receipt Date: 20220214
  Transmission Date: 20220423
  Serious: No
  Sender: FDA-Public Use
  Company Number: US-TG THERAPEUTICS INC.-TGT002301

PATIENT
  Age: 80 Year
  Sex: Female
  Weight: 65.76 kg

DRUGS (1)
  1. UKONIQ [Suspect]
     Active Substance: UMBRALISIB TOSYLATE
     Indication: Chronic lymphocytic leukaemia
     Dosage: 800 MILLIGRAM, QD
     Dates: start: 20211124, end: 20211221

REACTIONS (1)
  - Disease progression [Unknown]

NARRATIVE: CASE EVENT DATE: 20211221
